FAERS Safety Report 24924904 (Version 1)
Quarter: 2025Q1

REPORT INFORMATION
  Report Type: Report from Study
  Country: US (occurrence: US)
  Receive Date: 20250204
  Receipt Date: 20250204
  Transmission Date: 20250409
  Serious: No
  Sender: EXELIXIS
  Company Number: US-EXELIXIS-CABO-24076252

PATIENT
  Age: 60 Year
  Sex: Male

DRUGS (1)
  1. CABOMETYX [Suspect]
     Active Substance: CABOZANTINIB S-MALATE
     Indication: Renal cancer
     Dosage: 40 MG, QD
     Route: 048
     Dates: start: 20240329

REACTIONS (18)
  - Anal haemorrhage [Unknown]
  - Adverse drug reaction [Unknown]
  - Blood pressure diastolic increased [Unknown]
  - Epistaxis [Unknown]
  - Nausea [Unknown]
  - Stomatitis [Unknown]
  - Dysgeusia [Unknown]
  - Fatigue [Recovering/Resolving]
  - Paranasal sinus hypersecretion [Unknown]
  - Anosmia [Unknown]
  - Insomnia [Unknown]
  - Nasal ulcer [Unknown]
  - Rhinorrhoea [Unknown]
  - Proctalgia [Unknown]
  - Feeling abnormal [Unknown]
  - Sensory loss [Unknown]
  - Dry mouth [Unknown]
  - Product dose omission issue [Unknown]

NARRATIVE: CASE EVENT DATE: 20240507
